FAERS Safety Report 16663784 (Version 1)
Quarter: 2019Q3

REPORT INFORMATION
  Report Type: Spontaneous
  Country: US (occurrence: US)
  Receive Date: 20190802
  Receipt Date: 20190802
  Transmission Date: 20191004
  Serious: No
  Sender: FDA-Public Use
  Company Number: US-EMD SERONO-9107455

PATIENT
  Sex: Female

DRUGS (2)
  1. CLOMID [Suspect]
     Active Substance: CLOMIPHENE CITRATE
     Indication: ARTIFICIAL INSEMINATION
  2. OVITRELLE [Suspect]
     Active Substance: CHORIOGONADOTROPIN ALFA
     Indication: OVULATION INDUCTION

REACTIONS (3)
  - Abdominal distension [Unknown]
  - Fatigue [Unknown]
  - Muscle spasms [Unknown]

NARRATIVE: CASE EVENT DATE: 201801
